FAERS Safety Report 5604165-5 (Version None)
Quarter: 2008Q1

REPORT INFORMATION
  Report Type: 
  Country: None (occurrence: None)
  Receive Date: 20080123
  Receipt Date: 20080123
  Transmission Date: 20080703
  Serious: Yes (Life-Threatening, Hospitalization)
  Sender: FDA-Public Use
  Company Number: None

PATIENT
  Age: 83 Year
  Sex: Male
  Weight: 77.1115 kg

DRUGS (1)
  1. DESMOPRESSIN ACETATE [Suspect]
     Indication: NOCTURIA
     Dosage: ONE TABLET BEFORE BED PO
     Route: 048
     Dates: start: 20071109, end: 20071111

REACTIONS (5)
  - ASTHENIA [None]
  - BRADYPHRENIA [None]
  - CONFUSIONAL STATE [None]
  - GENERAL PHYSICAL CONDITION ABNORMAL [None]
  - HYPONATRAEMIA [None]
